FAERS Safety Report 18932464 (Version 2)
Quarter: 2021Q1

REPORT INFORMATION
  Report Type: Spontaneous
  Country: GB (occurrence: GB)
  Receive Date: 20210223
  Receipt Date: 20210318
  Transmission Date: 20210420
  Serious: Yes (Other)
  Sender: FDA-Public Use
  Company Number: GB-SUN PHARMACEUTICAL INDUSTRIES LTD-2021RR-282225

PATIENT
  Age: 60 Year
  Sex: Female
  Weight: 77 kg

DRUGS (10)
  1. OMEPRAZOLE. [Concomitant]
     Active Substance: OMEPRAZOLE
     Indication: ILL-DEFINED DISORDER
     Dosage: 1 DOSAGE FORM, DAILY
     Route: 065
     Dates: start: 20200617
  2. OXELTRA [Concomitant]
     Indication: ILL-DEFINED DISORDER
     Dosage: 1 DOSAGE FORM, BID
     Route: 065
     Dates: start: 20210112
  3. SALBUTAMOL [Concomitant]
     Active Substance: ALBUTEROL
     Indication: ILL-DEFINED DISORDER
     Dosage: 2 DOSAGE FORM, AS NEEDED
     Route: 055
     Dates: start: 20200213
  4. PREGABALIN. [Suspect]
     Active Substance: PREGABALIN
     Indication: ILL-DEFINED DISORDER
     Dosage: 75 MILLIGRAM, BID
     Route: 065
     Dates: start: 20210205
  5. BUDESONIDE. [Concomitant]
     Active Substance: BUDESONIDE
     Indication: ILL-DEFINED DISORDER
     Dosage: 12 MILLIGRAM, UNK, FOR ONE MONTH THEN ONE CAPSU
     Route: 065
     Dates: start: 20201112, end: 20201210
  6. PARACETAMOL [Concomitant]
     Active Substance: ACETAMINOPHEN
     Indication: ILL-DEFINED DISORDER
     Dosage: TAKE ONE OR TWO TABLETS EVERY FOUR TO SIX HOURS...
     Route: 065
     Dates: start: 20200407
  7. FAMOTIDINE. [Concomitant]
     Active Substance: FAMOTIDINE
     Indication: ILL-DEFINED DISORDER
     Dosage: 1 DOSAGE FORM, DAILY, IN THE MORNING
     Route: 065
     Dates: start: 20201102
  8. IBUPROFEN. [Concomitant]
     Active Substance: IBUPROFEN
     Indication: ILL-DEFINED DISORDER
     Dosage: TAKE ONE TO TWO TABLETS WITH OR JUST AFTER FOOD...
     Route: 065
     Dates: start: 20200617
  9. PREGABALIN. [Concomitant]
     Active Substance: PREGABALIN
     Indication: ILL-DEFINED DISORDER
     Dosage: TAKE ONE CAPSULE TWICE A DAY AS DIRECTED BY HOS...
     Route: 065
     Dates: start: 20210202
  10. LOPERAMIDE [Concomitant]
     Active Substance: LOPERAMIDE
     Indication: ILL-DEFINED DISORDER
     Dosage: 8 DOSAGE FORM, DAILY
     Route: 065
     Dates: start: 20201106

REACTIONS (3)
  - Hallucination [Recovered/Resolved]
  - Illness [Unknown]
  - Dizziness [Unknown]

NARRATIVE: CASE EVENT DATE: 20210205
